FAERS Safety Report 13549700 (Version 1)
Quarter: 2017Q2

REPORT INFORMATION
  Report Type: Spontaneous
  Country: US (occurrence: US)
  Receive Date: 20170516
  Receipt Date: 20170516
  Transmission Date: 20170830
  Serious: No
  Sender: FDA-Public Use
  Company Number: US-TEVA-727705ACC

PATIENT
  Sex: Male

DRUGS (1)
  1. ACETAMINOPHEN W/OXYCODONE [Suspect]
     Active Substance: ACETAMINOPHEN\OXYCODONE HYDROCHLORIDE
     Indication: PAIN
     Dosage: 10 MG/325 MG
     Route: 048
     Dates: start: 201610

REACTIONS (3)
  - Drug ineffective [Unknown]
  - Drug screen negative [Not Recovered/Not Resolved]
  - Suspected counterfeit product [Not Recovered/Not Resolved]
